FAERS Safety Report 10058270 (Version 5)
Quarter: 2014Q2

REPORT INFORMATION
  Report Type: Report from Study
  Country: CA (occurrence: CA)
  Receive Date: 20140404
  Receipt Date: 20140605
  Transmission Date: 20141212
  Serious: Yes (Other)
  Sender: FDA-Public Use
  Company Number: CA-ROCHE-1375944

PATIENT
  Age: 71 Year
  Sex: Female

DRUGS (9)
  1. HERCEPTIN [Suspect]
     Indication: BREAST CANCER
     Route: 065
  2. KADCYLA [Suspect]
     Indication: BREAST CANCER
     Route: 042
     Dates: start: 20140415
  3. TAXOL [Suspect]
     Indication: BREAST CANCER
     Route: 065
  4. DOCETAXEL [Suspect]
     Indication: BREAST CANCER
     Route: 065
  5. HYDROCORTISONE [Concomitant]
     Route: 042
     Dates: start: 20140506
  6. DETROL [Concomitant]
  7. ASA [Concomitant]
  8. ATACAND [Concomitant]
  9. REACTINE (CANADA) [Concomitant]
     Route: 042
     Dates: start: 20140506

REACTIONS (11)
  - Metastases to liver [Unknown]
  - Metastases to spine [Unknown]
  - Anxiety [Unknown]
  - Infusion related reaction [Recovered/Resolved]
  - Epistaxis [Unknown]
  - Hypoaesthesia [Unknown]
  - Nasopharyngitis [Recovering/Resolving]
  - Constipation [Recovered/Resolved]
  - Nausea [Not Recovered/Not Resolved]
  - Blood pressure increased [Unknown]
  - Decreased appetite [Not Recovered/Not Resolved]
